FAERS Safety Report 20713738 (Version 1)
Quarter: 2022Q2

REPORT INFORMATION
  Report Type: Spontaneous
  Country: US (occurrence: None)
  Receive Date: 20220414
  Receipt Date: 20220414
  Transmission Date: 20220720
  Serious: No
  Sender: FDA-Public Use
  Company Number: None

PATIENT
  Age: 24 Year
  Sex: Female
  Weight: 101.25 kg

DRUGS (2)
  1. VYVANSE [Suspect]
     Active Substance: LISDEXAMFETAMINE DIMESYLATE
     Indication: Attention deficit hyperactivity disorder
     Dates: start: 20220228
  2. KYLEENA [Suspect]
     Active Substance: LEVONORGESTREL

REACTIONS (5)
  - Depressed level of consciousness [None]
  - Memory impairment [None]
  - Asthenia [None]
  - Mental impairment [None]
  - Quality of life decreased [None]

NARRATIVE: CASE EVENT DATE: 20220401
